FAERS Safety Report 16541397 (Version 1)
Quarter: 2019Q3

REPORT INFORMATION
  Report Type: Spontaneous
  Country: IT (occurrence: IT)
  Receive Date: 20190708
  Receipt Date: 20190708
  Transmission Date: 20191004
  Serious: Yes (Hospitalization)
  Sender: FDA-Public Use
  Company Number: IT-NOVOPROD-671141

PATIENT
  Sex: Female

DRUGS (1)
  1. NOVORAPID [Suspect]
     Active Substance: INSULIN ASPART
     Indication: DIABETES MELLITUS
     Dosage: UNK
     Route: 058

REACTIONS (4)
  - Diabetic ketoacidosis [Recovered/Resolved]
  - Liquid product physical issue [Unknown]
  - Product leakage [Unknown]
  - Product physical issue [Unknown]

NARRATIVE: CASE EVENT DATE: 20190522
